FAERS Safety Report 20079827 (Version 1)
Quarter: 2021Q4

REPORT INFORMATION
  Report Type: Spontaneous
  Country: TW (occurrence: TW)
  Receive Date: 20211117
  Receipt Date: 20211117
  Transmission Date: 20220303
  Serious: Yes (Other)
  Sender: FDA-Public Use
  Company Number: TW-BAYER-2021A248465

PATIENT
  Age: 64 Year
  Sex: Female

DRUGS (2)
  1. NEXAVAR [Suspect]
     Active Substance: SORAFENIB
     Indication: Hepatocellular carcinoma
     Dosage: UNK
     Route: 048
     Dates: start: 201811, end: 201911
  2. STIVARGA [Suspect]
     Active Substance: REGORAFENIB
     Indication: Hepatocellular carcinoma
     Dosage: UNK UNK, QD
     Route: 048
     Dates: start: 201911

REACTIONS (3)
  - Hepatocellular carcinoma [None]
  - Metastases to lung [None]
  - Child-Pugh-Turcotte score increased [None]

NARRATIVE: CASE EVENT DATE: 20191101
